FAERS Safety Report 5000584-9 (Version None)
Quarter: 2006Q2

REPORT INFORMATION
  Report Type: 
  Country: None (occurrence: None)
  Receive Date: 20060512
  Receipt Date: 20060504
  Transmission Date: 20061013
  Serious: Yes (Hospitalization)
  Sender: FDA-Public Use
  Company Number: US-JNJFOC-20060501565

PATIENT
  Sex: Female
  Weight: 95.26 kg

DRUGS (2)
  1. ORTHO EVRA [Suspect]
     Route: 062
  2. ORTHO EVRA [Suspect]
     Route: 062

REACTIONS (2)
  - ACNE [None]
  - CELLULITIS [None]
